FAERS Safety Report 7094243-9 (Version None)
Quarter: 2010Q4

REPORT INFORMATION
  Report Type: 
  Country: None (occurrence: None)
  Receive Date: 20101110
  Receipt Date: 20101101
  Transmission Date: 20110411
  Serious: Yes (Disabling, Other)
  Sender: FDA-Public Use
  Company Number: DK-SANOFI-AVENTIS-2010SA066747

PATIENT
  Age: 74 Year
  Sex: Male
  Weight: 86 kg

DRUGS (4)
  1. PLAVIX [Suspect]
     Indication: PROPHYLAXIS
     Dosage: 75 MILLIGRAM(S)
     Route: 048
     Dates: start: 20090722, end: 20100722
  2. SIMVASTATIN [Concomitant]
     Indication: HYPERCHOLESTEROLAEMIA
     Dates: start: 20090617, end: 20100224
  3. METOPROLOL SUCCINATE [Concomitant]
     Indication: ANGINA PECTORIS
     Dates: start: 20090609, end: 20100224
  4. ACETYLSALICYLIC ACID [Concomitant]
     Indication: ANGINA PECTORIS
     Dosage: 75 MILLIGRAM(S)
     Route: 048
     Dates: start: 20090609

REACTIONS (2)
  - DISABILITY [None]
  - POLYNEUROPATHY [None]
